FAERS Safety Report 9525339 (Version 1)
Quarter: 2013Q3

REPORT INFORMATION
  Report Type: Spontaneous
  Country: US (occurrence: None)
  Receive Date: 20130912
  Receipt Date: 20130912
  Transmission Date: 20140515
  Serious: Yes (Other)
  Sender: FDA-Public Use
  Company Number: IMP_06815_2013

PATIENT
  Age: 58 Year
  Sex: Female

DRUGS (10)
  1. CLONIDINE [Suspect]
     Indication: PRODUCT USED FOR UNKNOWN INDICATION
  2. TAPENTADOL [Suspect]
     Indication: NEUROPATHY PERIPHERAL
  3. HYDROCHLOROTHIAZIDE WITH TRIAMTERENE [Concomitant]
  4. VALSARTAN [Concomitant]
  5. CELECOXIB [Concomitant]
  6. CARBOPLATIN [Concomitant]
  7. PACLITAXEL [Concomitant]
  8. DIPHENHYDRAMINE [Concomitant]
  9. RANITIDINE [Concomitant]
  10. PALONOSETRON [Concomitant]

REACTIONS (5)
  - Hypertension [None]
  - Neuropathy peripheral [None]
  - Feeling abnormal [None]
  - Heart rate increased [None]
  - Drug interaction [None]
